FAERS Safety Report 4840593-3 (Version None)
Quarter: 2005Q4

REPORT INFORMATION
  Report Type: 
  Country: None (occurrence: None)
  Receive Date: 20051129
  Receipt Date: 20051129
  Transmission Date: 20060501
  Serious: Yes (Hospitalization)
  Sender: FDA-Public Use
  Company Number: None

PATIENT

DRUGS (1)
  1. COUMADIN [Suspect]
     Indication: DEEP VEIN THROMBOSIS
     Dosage: VARIABLE

REACTIONS (2)
  - GASTROINTESTINAL HAEMORRHAGE [None]
  - HYPOTENSION [None]
